FAERS Safety Report 18354404 (Version 1)
Quarter: 2020Q4

REPORT INFORMATION
  Report Type: Spontaneous
  Country: US (occurrence: US)
  Receive Date: 20201007
  Receipt Date: 20201007
  Transmission Date: 20210114
  Serious: Yes (Hospitalization, Other)
  Sender: FDA-Public Use
  Company Number: US-PFIZER INC-2020384133

PATIENT
  Age: 51 Year
  Sex: Female

DRUGS (2)
  1. METHOTREXATE SODIUM. [Suspect]
     Active Substance: METHOTREXATE SODIUM
     Dosage: 20 MG, WEEKLY
  2. PREDNISONE. [Suspect]
     Active Substance: PREDNISONE
     Dosage: 5 MG, DAILY (5MG PER DAY)

REACTIONS (6)
  - Bone marrow failure [Unknown]
  - Pyrexia [Unknown]
  - Fatigue [Unknown]
  - Stomatitis [Unknown]
  - Neutropenia [Unknown]
  - Lung infiltration [Unknown]
